FAERS Safety Report 7127915-8 (Version None)
Quarter: 2010Q4

REPORT INFORMATION
  Report Type: 
  Country: None (occurrence: None)
  Receive Date: 20101130
  Receipt Date: 20101122
  Transmission Date: 20110411
  Serious: Yes (Other)
  Sender: FDA-Public Use
  Company Number: US-PFIZER INC-2010155078

PATIENT
  Sex: Male
  Weight: 88 kg

DRUGS (3)
  1. LIPITOR [Suspect]
     Indication: HYPERCHOLESTEROLAEMIA
     Dosage: UNK
     Route: 048
  2. ZETIA [Concomitant]
     Indication: HYPERCHOLESTEROLAEMIA
     Dosage: 10 MG, 1X/DAY
     Route: 048
  3. TOPROL-XL [Concomitant]
     Indication: CORONARY ARTERY DISEASE
     Dosage: 25 MG, 1X/DAY
     Route: 048
     Dates: start: 19990101

REACTIONS (3)
  - BLOOD CREATINE PHOSPHOKINASE INCREASED [None]
  - CAMPTOCORMIA [None]
  - MUSCLE ATROPHY [None]
